FAERS Safety Report 14382419 (Version 7)
Quarter: 2019Q1

REPORT INFORMATION
  Report Type: Spontaneous
  Country: PL (occurrence: PL)
  Receive Date: 20180112
  Receipt Date: 20190212
  Transmission Date: 20190417
  Serious: Yes (Other)
  Sender: FDA-Public Use
  Company Number: PL-MYLANLABS-2018M1003406

PATIENT
  Age: 70 Year
  Sex: Female

DRUGS (16)
  1. RIVASTIGMINE. [Suspect]
     Active Substance: RIVASTIGMINE
     Indication: PRODUCT USED FOR UNKNOWN INDICATION
     Dosage: UNK
  2. CARBIDOPA/LEVODOPA [Suspect]
     Active Substance: CARBIDOPA\LEVODOPA
     Dosage: UNK, QD
  3. AMANTADINE. [Suspect]
     Active Substance: AMANTADINE HYDROCHLORIDE
     Indication: PARKINSON^S DISEASE
     Dosage: 200 MG, QD
  4. RASAGILINE MESILATE [Suspect]
     Active Substance: RASAGILINE MESYLATE
     Indication: PARKINSON^S DISEASE
     Dosage: 1 MG, QD
  5. ROPINIROLE. [Interacting]
     Active Substance: ROPINIROLE
     Dosage: 2 MILLIGRAM, QD
     Route: 048
  6. CLOZAPINE. [Suspect]
     Active Substance: CLOZAPINE
     Indication: PRODUCT USED FOR UNKNOWN INDICATION
     Dosage: UNK
  7. HYDROXYZINE [Suspect]
     Active Substance: HYDROXYZINE HYDROCHLORIDE
     Indication: ANXIETY DISORDER
     Dosage: 25 MILLIGRAM, QD
  8. OXYBUTYNIN. [Interacting]
     Active Substance: OXYBUTYNIN CHLORIDE
     Indication: URINARY INCONTINENCE
     Dosage: 15 MG, QD
  9. ROPINIROLE. [Interacting]
     Active Substance: ROPINIROLE
     Indication: PARKINSON^S DISEASE
     Dosage: 8 MG, QD
     Route: 048
  10. ROPINIROLE. [Interacting]
     Active Substance: ROPINIROLE
     Dosage: 6 MG, QD
     Route: 048
  11. AMITRIPTYLINE [Interacting]
     Active Substance: AMITRIPTYLINE
     Indication: SLEEP DISORDER
     Dosage: UNK
  12. CARBIDOPA/LEVODOPA [Suspect]
     Active Substance: CARBIDOPA\LEVODOPA
     Indication: PARKINSON^S DISEASE
     Dosage: UNK, QID
  13. AMOXICILLIN. [Concomitant]
     Active Substance: AMOXICILLIN
     Indication: PNEUMONIA
     Dosage: UNK
  14. AMITRIPTYLINE [Interacting]
     Active Substance: AMITRIPTYLINE
     Indication: DEPRESSION
     Dosage: 25 MG, QD
  15. AMANTADINE. [Suspect]
     Active Substance: AMANTADINE HYDROCHLORIDE
     Dosage: 100 MILLIGRAM, QD
  16. BIPERIDEN [Interacting]
     Active Substance: BIPERIDEN
     Indication: PARKINSON^S DISEASE
     Dosage: 4 MG, QD

REACTIONS (16)
  - Hallucinations, mixed [Recovered/Resolved]
  - Resting tremor [Unknown]
  - Mental impairment [Unknown]
  - C-reactive protein increased [Unknown]
  - Neutrophil count increased [Unknown]
  - Psychotic symptom [Unknown]
  - Bradykinesia [Unknown]
  - Pneumonia [Recovering/Resolving]
  - Anxiety [Unknown]
  - Leukocytosis [Unknown]
  - Labelled drug-drug interaction medication error [Unknown]
  - Parkinson^s disease [Unknown]
  - On and off phenomenon [Unknown]
  - Musculoskeletal stiffness [Unknown]
  - Dementia [Unknown]
  - Cerebral atrophy [Unknown]
